FAERS Safety Report 12389564 (Version 3)
Quarter: 2018Q3

REPORT INFORMATION
  Report Type: Report from Study
  Country: BR (occurrence: BR)
  Receive Date: 20160520
  Receipt Date: 20180802
  Transmission Date: 20181010
  Serious: Yes (Other)
  Sender: FDA-Public Use
  Company Number: BR-JNJFOC-20160517462

PATIENT
  Age: 64 Year
  Sex: Female
  Weight: 75 kg

DRUGS (12)
  1. SELOZOK [Concomitant]
     Active Substance: METOPROLOL SUCCINATE
     Route: 065
  2. MACRODANTIN [Suspect]
     Active Substance: NITROFURANTOIN
     Indication: URINARY TRACT INFECTION
     Route: 065
     Dates: start: 20160802, end: 20160812
  3. LEFLUNOMIDE. [Concomitant]
     Active Substance: LEFLUNOMIDE
     Route: 065
  4. GLIFAGE [Concomitant]
     Active Substance: METFORMIN HYDROCHLORIDE
     Route: 065
  5. NIMESULIDE [Concomitant]
     Active Substance: NIMESULIDE
     Route: 065
  6. CEPHALEXIN MONOHYDRATE. [Suspect]
     Active Substance: CEPHALEXIN MONOHYDRATE
     Indication: URINARY TRACT INFECTION
     Route: 065
     Dates: start: 20160802, end: 20160812
  7. MICARDIS HCT [Concomitant]
     Active Substance: HYDROCHLOROTHIAZIDE\TELMISARTAN
     Route: 065
  8. SIMPONI [Suspect]
     Active Substance: GOLIMUMAB
     Indication: RHEUMATOID ARTHRITIS
     Route: 058
     Dates: start: 20130708
  9. MACRODANTIN [Suspect]
     Active Substance: NITROFURANTOIN
     Indication: OROPHARYNGEAL PAIN
     Route: 065
     Dates: start: 20160802, end: 20160812
  10. CEPHALEXIN MONOHYDRATE. [Suspect]
     Active Substance: CEPHALEXIN MONOHYDRATE
     Indication: OROPHARYNGEAL PAIN
     Route: 065
     Dates: start: 20160802, end: 20160812
  11. METHOTREXATE. [Concomitant]
     Active Substance: METHOTREXATE
     Route: 065
  12. DIAMICRON [Concomitant]
     Active Substance: GLICLAZIDE
     Route: 065

REACTIONS (11)
  - Urinary tract infection [Unknown]
  - Skin atrophy [Unknown]
  - Pain [Unknown]
  - Oropharyngeal pain [Unknown]
  - Anaemia [Unknown]
  - Hyperhidrosis [Unknown]
  - Shoulder operation [Unknown]
  - Knee arthroplasty [Unknown]
  - Cyst [Unknown]
  - Knee operation [Recovering/Resolving]
  - Cataract [Unknown]

NARRATIVE: CASE EVENT DATE: 201608
